FAERS Safety Report 4405219-1 (Version None)
Quarter: 2004Q3

REPORT INFORMATION
  Report Type: 
  Country: None (occurrence: None)
  Receive Date: 20040722
  Receipt Date: 20040722
  Transmission Date: 20050211
  Serious: Yes (Hospitalization)
  Sender: FDA-Public Use
  Company Number: None

PATIENT
  Age: 53 Year
  Sex: Male
  Weight: 72.6 kg

DRUGS (8)
  1. GABAPENTIN [Suspect]
  2. TRAZODONE HCL [Concomitant]
  3. MIRTAZAPINE [Concomitant]
  4. THIAMINE [Concomitant]
  5. MULTIVITAMINS/ZINC (CENTRUM) [Concomitant]
  6. MAGNESIUM HYDROXIDE TAB [Concomitant]
  7. ALOH/MGOH/SIMTH [Concomitant]
  8. ACETAMINOPHEN [Concomitant]

REACTIONS (1)
  - AGITATION [None]
